FAERS Safety Report 6532519-1 (Version None)
Quarter: 2009Q4

REPORT INFORMATION
  Report Type: 
  Country: None (occurrence: None)
  Receive Date: 20091216
  Receipt Date: 20091204
  Transmission Date: 20100525
  Serious: Yes (Other)
  Sender: FDA-Public Use
  Company Number: THRO-2009-00017

PATIENT
  Age: 65 Year
  Sex: Female

DRUGS (1)
  1. RECOTHROM [Suspect]
     Indication: VASCULAR PSEUDOANEURYSM
     Dosage: (1 ML), INTRA-ARTERIAL
     Route: 013
     Dates: start: 20091204, end: 20091204

REACTIONS (3)
  - EXTRAVASATION [None]
  - PALLOR [None]
  - PULSE ABSENT [None]
